FAERS Safety Report 5018383-0 (Version None)
Quarter: 2006Q2

REPORT INFORMATION
  Report Type: 
  Country: None (occurrence: None)
  Receive Date: 20060530
  Receipt Date: 20060426
  Transmission Date: 20061013
  Serious: Yes (Hospitalization)
  Sender: FDA-Public Use
  Company Number: 2006058500

PATIENT
  Sex: Male

DRUGS (1)
  1. CELEBREX [Suspect]
     Indication: ILL-DEFINED DISORDER
     Dosage: 200 MG (200 MG, 1 IN 1 D)
     Dates: start: 19980101

REACTIONS (8)
  - ANGINA PECTORIS [None]
  - CEREBROVASCULAR ACCIDENT [None]
  - CHOLECYSTECTOMY [None]
  - DOUBLE VESSEL BYPASS GRAFT [None]
  - GASTROOESOPHAGEAL REFLUX DISEASE [None]
  - MENTAL DISORDER [None]
  - PANCREATIC DISORDER [None]
  - TRANSIENT ISCHAEMIC ATTACK [None]
